FAERS Safety Report 11700118 (Version 2)
Quarter: 2015Q4

REPORT INFORMATION
  Report Type: Spontaneous
  Country: US (occurrence: US)
  Receive Date: 20151105
  Receipt Date: 20151113
  Transmission Date: 20160304
  Serious: Yes (Other)
  Sender: FDA-Public Use
  Company Number: US-UCBSA-2015034942

PATIENT
  Sex: Female
  Weight: 113 kg

DRUGS (8)
  1. HYDROCHLOROTHIAZIDE. [Concomitant]
     Active Substance: HYDROCHLOROTHIAZIDE
     Indication: DIURETIC THERAPY
     Dosage: 25 MG, ONCE DAILY (QD), STARTED 2 YEARS AGO
     Route: 048
  2. ESCITALOPRAM [Concomitant]
     Active Substance: ESCITALOPRAM OXALATE
     Indication: DEPRESSION
     Dosage: 20 MG DAILY DOSE, STARTED ABOUT 9 MONTHS TO A YEAR AGO
     Route: 048
  3. MORPHINE [Concomitant]
     Active Substance: MORPHINE
     Indication: PAIN
     Dosage: UNK, STARTED A YEAR AGO, STOPPED LAST WEEK (FROM THIS REPORT DAY ZERO 06-NOV-2015)
     Route: 048
  4. CYMBALTA [Concomitant]
     Active Substance: DULOXETINE HYDROCHLORIDE
     Indication: FIBROMYALGIA
     Dosage: 60 MG, 2X/DAY (BID), STARTED 1 AND A HALF YEAR AGO
     Route: 048
  5. OXYCODONE [Concomitant]
     Active Substance: OXYCODONE
     Indication: PAIN
     Dosage: UNK, STARTED A YEAR AGO
     Route: 048
  6. CIMZIA [Suspect]
     Active Substance: CERTOLIZUMAB PEGOL
     Indication: CROHN^S DISEASE
     Dosage: 400 MG, MONTHLY (QM)
     Route: 058
     Dates: end: 20151015
  7. TOPIRAMATE. [Concomitant]
     Active Substance: TOPIRAMATE
     Indication: PAIN
     Dosage: 25 MG, 2X/DAY (BID), 1 AND A HALF YEAR AGO
     Route: 048
  8. ATENOLOL. [Concomitant]
     Active Substance: ATENOLOL
     Indication: BLOOD PRESSURE MEASUREMENT
     Dosage: 50 MG, ONCE DAILY (QD), STARTED 2 YEARS AGO
     Route: 048

REACTIONS (4)
  - Deafness unilateral [Recovering/Resolving]
  - Dry eye [Not Recovered/Not Resolved]
  - Dysphagia [Recovering/Resolving]
  - Vision blurred [Not Recovered/Not Resolved]
